FAERS Safety Report 5502195-5 (Version None)
Quarter: 2007Q4

REPORT INFORMATION
  Report Type: 
  Country: None (occurrence: None)
  Receive Date: 20071030
  Receipt Date: 20071019
  Transmission Date: 20080405
  Serious: Yes (Hospitalization)
  Sender: FDA-Public Use
  Company Number: US-ASTRAZENECA-2007UW14322

PATIENT
  Age: 13862 Day
  Sex: Female
  Weight: 129.5 kg

DRUGS (3)
  1. SEROQUEL [Suspect]
     Indication: BIPOLAR DISORDER
     Dosage: 25 MG THEN 150 MG
     Route: 048
     Dates: start: 20050301, end: 20050404
  2. SEROQUEL [Suspect]
     Indication: DEPRESSION
     Dosage: 25 MG THEN 150 MG
     Route: 048
     Dates: start: 20050301, end: 20050404
  3. ABILIFY [Concomitant]

REACTIONS (3)
  - NEPHRITIS INTERSTITIAL [None]
  - RENAL FAILURE [None]
  - TYPE 2 DIABETES MELLITUS [None]
